FAERS Safety Report 8619430 (Version 4)
Quarter: 2014Q2

REPORT INFORMATION
  Report Type: Spontaneous
  Country: US (occurrence: US)
  Receive Date: 20120618
  Receipt Date: 20140429
  Transmission Date: 20141212
  Serious: Yes (Hospitalization)
  Sender: FDA-Public Use
  Company Number: US-BAYER-2012-058355

PATIENT
  Age: 21 Year
  Sex: Female
  Weight: 95.24 kg

DRUGS (4)
  1. YAZ [Suspect]
     Indication: CONTRACEPTION
     Dosage: UNK
     Dates: start: 20080625, end: 20100708
  2. ZANTAC [Concomitant]
  3. ZOFRAN [Concomitant]
     Dosage: UNK
     Dates: start: 20100903
  4. NUVARING [Concomitant]
     Dosage: UNK
     Dates: end: 201009

REACTIONS (2)
  - Pulmonary embolism [Recovered/Resolved]
  - Injury [Recovered/Resolved]
